FAERS Safety Report 24246399 (Version 1)
Quarter: 2024Q3

REPORT INFORMATION
  Report Type: Spontaneous
  Country: JP (occurrence: JP)
  Receive Date: 20240825
  Receipt Date: 20240825
  Transmission Date: 20241017
  Serious: Yes (Death, Hospitalization, Other)
  Sender: INVENTIA HEALTHCARE
  Company Number: JP-Inventia-000741

PATIENT
  Age: 81 Year
  Sex: Male

DRUGS (5)
  1. LANSOPRAZOLE [Suspect]
     Active Substance: LANSOPRAZOLE
     Indication: Pneumonia
  2. CEFTRIAXONE [Suspect]
     Active Substance: CEFTRIAXONE\CEFTRIAXONE SODIUM
     Indication: Pneumonia
     Dosage: 2 G/DAY FOR 14 DAYS
  3. TRAZODONE [Concomitant]
     Active Substance: TRAZODONE HYDROCHLORIDE
  4. LANSOPRAZOLE [Suspect]
     Active Substance: LANSOPRAZOLE
     Indication: Pleural effusion
  5. CEFTRIAXONE [Suspect]
     Active Substance: CEFTRIAXONE\CEFTRIAXONE SODIUM
     Indication: Pleural effusion
     Dosage: 2 G/DAY FOR 14 DAYS

REACTIONS (3)
  - Bundle branch block left [Fatal]
  - Agonal respiration [Unknown]
  - Pulseless electrical activity [Unknown]
